FAERS Safety Report 11472760 (Version 2)
Quarter: 2015Q4

REPORT INFORMATION
  Report Type: Spontaneous
  Country: US (occurrence: US)
  Receive Date: 20150908
  Receipt Date: 20151007
  Transmission Date: 20160304
  Serious: No
  Sender: FDA-Public Use
  Company Number: PHEH2015US017169

PATIENT
  Age: 81 Year
  Sex: Female

DRUGS (2)
  1. JADENU [Suspect]
     Active Substance: DEFERASIROX
     Dosage: 360 MG, UNK
     Route: 048
  2. JADENU [Suspect]
     Active Substance: DEFERASIROX
     Indication: THALASSAEMIA
     Dosage: 540 MG, DAILY (QD)
     Route: 048
     Dates: start: 20150701

REACTIONS (1)
  - Microalbuminuria [Recovered/Resolved]

NARRATIVE: CASE EVENT DATE: 20150728
